FAERS Safety Report 9104846 (Version 2)
Quarter: 2013Q2

REPORT INFORMATION
  Report Type: Spontaneous
  Country: US (occurrence: US)
  Receive Date: 20130220
  Receipt Date: 20130405
  Transmission Date: 20140414
  Serious: Yes (Other)
  Sender: FDA-Public Use
  Company Number: US-TEVA-386495USA

PATIENT
  Sex: 0

DRUGS (1)
  1. VENLAFAXINE [Suspect]

REACTIONS (2)
  - Malignant melanoma [Unknown]
  - Basal cell carcinoma [Unknown]
